FAERS Safety Report 5872994-9 (Version None)
Quarter: 2008Q3

REPORT INFORMATION
  Report Type: 
  Country: None (occurrence: None)
  Receive Date: 20080903
  Receipt Date: 20080825
  Transmission Date: 20090109
  Serious: Yes (Other)
  Sender: FDA-Public Use
  Company Number: MEDI-0007086

PATIENT

DRUGS (2)
  1. ETHYOL [Suspect]
     Indication: RADIOTHERAPY
  2. RADIATION THERAPY [Concomitant]

REACTIONS (3)
  - ANOREXIA [None]
  - ASPARTATE AMINOTRANSFERASE INCREASED [None]
  - NAUSEA [None]
